FAERS Safety Report 7688165-X (Version None)
Quarter: 2011Q3

REPORT INFORMATION
  Report Type: 
  Country: None (occurrence: None)
  Receive Date: 20110817
  Receipt Date: 20110618
  Transmission Date: 20111222
  Serious: No
  Sender: FDA-Public Use
  Company Number: US-GLAXOSMITHKLINE-A0891296A

PATIENT
  Age: 82 Year
  Sex: Male

DRUGS (8)
  1. NORVASC [Concomitant]
  2. COUMADIN [Concomitant]
  3. VOTRIENT [Suspect]
     Indication: RENAL CELL CARCINOMA
     Dosage: 1TAB THREE TIMES PER DAY
     Route: 048
     Dates: start: 20101016
  4. CRESTOR [Concomitant]
  5. CELEXA [Concomitant]
  6. HYTRIN [Concomitant]
  7. AVALIDE [Concomitant]
  8. AVODART [Concomitant]

REACTIONS (6)
  - ASTHENIA [None]
  - ABDOMINAL PAIN [None]
  - WEIGHT DECREASED [None]
  - NAUSEA [None]
  - ACTIVITIES OF DAILY LIVING IMPAIRED [None]
  - ABNORMAL FAECES [None]
